FAERS Safety Report 8954125 (Version 1)
Quarter: 2012Q4

REPORT INFORMATION
  Report Type: 
  Country: US (occurrence: US)
  Receive Date: 20121207
  Receipt Date: 20121207
  Transmission Date: 20130627
  Serious: No
  Sender: FDA-Public Use
  Company Number: US-GLAXOSMITHKLINE-A0958356A

PATIENT
  Age: 62 Year
  Sex: Male

DRUGS (3)
  1. HYCAMTIN [Suspect]
     Indication: BRONCHIAL CARCINOMA
     Dosage: 1MG Per day
     Route: 048
     Dates: start: 20111103, end: 20111130
  2. OXYCODONE [Concomitant]
  3. BENICAR [Concomitant]

REACTIONS (2)
  - Liver disorder [Unknown]
  - Renal disorder [Unknown]
